FAERS Safety Report 5632046-X (Version None)
Quarter: 2008Q1

REPORT INFORMATION
  Report Type: 
  Country: None (occurrence: None)
  Receive Date: 20080220
  Receipt Date: 20080213
  Transmission Date: 20080703
  Serious: Yes (Other)
  Sender: FDA-Public Use
  Company Number: FR-WYE-G01052508

PATIENT
  Sex: Male

DRUGS (11)
  1. TAZOCILLINE [Suspect]
     Indication: PYREXIA
     Route: 042
     Dates: start: 20071124, end: 20071125
  2. TAZOCILLINE [Suspect]
     Route: 042
     Dates: start: 20071126, end: 20071126
  3. TAZOCILLINE [Suspect]
     Route: 042
     Dates: start: 20071130, end: 20071130
  4. TAZOCILLINE [Suspect]
     Route: 042
     Dates: start: 20071202, end: 20071212
  5. THEOSTAT [Concomitant]
     Route: 048
     Dates: start: 20071129, end: 20071201
  6. SERETIDE [Concomitant]
     Dosage: 500 UG (FLUTICASONE)/50 UG (SALMETEROL) 2 TIMES DAILY
     Route: 002
     Dates: start: 20071129, end: 20071212
  7. MOPRAL [Concomitant]
     Route: 042
     Dates: start: 20071125, end: 20071212
  8. LOVENOX [Concomitant]
     Route: 058
     Dates: start: 20071124, end: 20071212
  9. CIFLOX [Suspect]
     Indication: PYREXIA
     Route: 042
     Dates: start: 20071125, end: 20071126
  10. CIFLOX [Suspect]
     Route: 042
     Dates: start: 20071127, end: 20071209
  11. ACETYLCYSTEINE [Concomitant]
     Route: 048
     Dates: start: 20071129, end: 20071201

REACTIONS (3)
  - AGITATION [None]
  - ANTIBIOTIC LEVEL ABOVE THERAPEUTIC [None]
  - CONFUSIONAL STATE [None]
